FAERS Safety Report 20003961 (Version 2)
Quarter: 2021Q4

REPORT INFORMATION
  Report Type: Spontaneous
  Country: JP (occurrence: JP)
  Receive Date: 20211027
  Receipt Date: 20211122
  Transmission Date: 20220303
  Serious: Yes (Other)
  Sender: FDA-Public Use
  Company Number: JP-PFIZER INC-202101376144

PATIENT
  Sex: Female
  Weight: 44.7 kg

DRUGS (3)
  1. SUTENT [Suspect]
     Active Substance: SUNITINIB MALATE
     Indication: Renal cancer metastatic
     Dosage: 37.5 MG (3 CAPSULES), 1X/DAY (AFTER BREAKFAST)
     Route: 048
     Dates: start: 20210105, end: 20210420
  2. LOXOPROFEN TAB.60MG EMEC [Concomitant]
     Indication: Pain
     Dosage: 60 MG, AS NEEDED
     Dates: start: 20201222
  3. REBAMIPIDE [Concomitant]
     Active Substance: REBAMIPIDE
     Indication: Pain
     Dosage: 100 MG, AS NEEDED
     Dates: start: 20201222

REACTIONS (6)
  - Myelosuppression [Unknown]
  - Palmar-plantar erythrodysaesthesia syndrome [Unknown]
  - Hypertension [Unknown]
  - Alanine aminotransferase increased [Unknown]
  - Aspartate aminotransferase increased [Unknown]
  - Blood thyroid stimulating hormone increased [Unknown]

NARRATIVE: CASE EVENT DATE: 20210101
